FAERS Safety Report 15202805 (Version 1)
Quarter: 2018Q3

REPORT INFORMATION
  Report Type: Spontaneous
  Country: US (occurrence: US)
  Receive Date: 20180726
  Receipt Date: 20180726
  Transmission Date: 20181010
  Serious: Yes (Other)
  Sender: FDA-Public Use
  Company Number: US-AUROBINDO-AUR-APL-2018-036383

PATIENT
  Age: 65 Year
  Sex: Female
  Weight: 49.89 kg

DRUGS (7)
  1. DULOXETINE DELAYED?RELEASE CAPSULES USP 60 MG [Suspect]
     Active Substance: DULOXETINE HYDROCHLORIDE
     Indication: ANXIETY
     Dosage: PROBABLY 6 YEARS AGO, 2 CAPSULES
     Route: 048
  2. LAMICTAL [Concomitant]
     Active Substance: LAMOTRIGINE
     Indication: PRODUCT USED FOR UNKNOWN INDICATION
     Route: 065
  3. TRAZADOL [Concomitant]
     Active Substance: TRAZODONE HYDROCHLORIDE
     Indication: PRODUCT USED FOR UNKNOWN INDICATION
     Route: 065
  4. METHYLPHENIDATE. [Concomitant]
     Active Substance: METHYLPHENIDATE
     Indication: PRODUCT USED FOR UNKNOWN INDICATION
     Dosage: 12.5, OR MAYBE IT^S 4 .05 OR 0.5 MG
     Route: 065
  5. DULOXETINE DELAYED?RELEASE CAPSULES USP 60 MG [Suspect]
     Active Substance: DULOXETINE HYDROCHLORIDE
     Indication: DEPRESSION
  6. LEVOTHYROXINE. [Concomitant]
     Active Substance: LEVOTHYROXINE
     Indication: PRODUCT USED FOR UNKNOWN INDICATION
     Route: 065
  7. LATUDA [Concomitant]
     Active Substance: LURASIDONE HYDROCHLORIDE
     Indication: PRODUCT USED FOR UNKNOWN INDICATION
     Dosage: I /2 TABLET AT NIGHT
     Route: 065

REACTIONS (12)
  - Dental caries [Unknown]
  - Diplopia [Unknown]
  - Dry mouth [Unknown]
  - Dizziness [Unknown]
  - Ischaemic stroke [Unknown]
  - Depression [Unknown]
  - Circulatory collapse [Unknown]
  - Headache [Unknown]
  - Anxiety [Unknown]
  - Tooth loss [Unknown]
  - Drug ineffective [Unknown]
  - Mobility decreased [Unknown]
